FAERS Safety Report 5847935-0 (Version None)
Quarter: 2008Q3

REPORT INFORMATION
  Report Type: 
  Country: None (occurrence: None)
  Receive Date: 20080818
  Receipt Date: 20080721
  Transmission Date: 20090109
  Serious: Yes (Death, Other)
  Sender: FDA-Public Use
  Company Number: RU-ROCHE-576776

PATIENT

DRUGS (2)
  1. MYCOPHENOLATE MOFETIL [Suspect]
     Route: 048
  2. PREDNISOLONE [Concomitant]
     Dosage: DRUG NAME: PREDNOZOLONE.

REACTIONS (3)
  - DEATH [None]
  - PANCYTOPENIA [None]
  - VOMITING [None]
